FAERS Safety Report 20621072 (Version 1)
Quarter: 2022Q1

REPORT INFORMATION
  Report Type: Spontaneous
  Country: CA (occurrence: CA)
  Receive Date: 20220322
  Receipt Date: 20220322
  Transmission Date: 20220423
  Serious: Yes (Other)
  Sender: FDA-Public Use
  Company Number: CA-MLMSERVICE-20180326-1124841-1

PATIENT
  Age: 55 Year
  Sex: Male

DRUGS (3)
  1. HYDROCHLOROTHIAZIDE [Suspect]
     Active Substance: HYDROCHLOROTHIAZIDE
     Indication: Hypertension
  2. CANDESARTAN [Suspect]
     Active Substance: CANDESARTAN
     Indication: Hypertension
  3. PONATINIB [Concomitant]
     Active Substance: PONATINIB
     Indication: Chronic myeloid leukaemia
     Dates: start: 2011

REACTIONS (5)
  - Blood creatinine increased [Recovered/Resolved]
  - Renal artery angioplasty [Recovered/Resolved]
  - Renal artery stenosis [Recovered/Resolved]
  - Renal artery stent placement [Recovered/Resolved]
  - Renovascular hypertension [Unknown]
